FAERS Safety Report 22897874 (Version 2)
Quarter: 2025Q3

REPORT INFORMATION
  Report Type: Spontaneous
  Country: US (occurrence: US)
  Receive Date: 20230903
  Receipt Date: 20250929
  Transmission Date: 20251020
  Serious: Yes (Other)
  Sender: SANOFI AVENTIS
  Company Number: US-SA-SAC20230829000680

PATIENT
  Age: 85 Year
  Sex: Female
  Weight: 43.991 kg

DRUGS (1)
  1. KEVZARA [Suspect]
     Active Substance: SARILUMAB
     Dosage: 200 MG, QOW
     Route: 058

REACTIONS (4)
  - Cellulitis [Recovered/Resolved]
  - Skin atrophy [Unknown]
  - Injection site bruising [Unknown]
  - Fall [Unknown]

NARRATIVE: CASE EVENT DATE: 20230801
